FAERS Safety Report 24436353 (Version 1)
Quarter: 2024Q4

REPORT INFORMATION
  Report Type: Report from Study
  Country: DE (occurrence: DE)
  Receive Date: 20241015
  Receipt Date: 20241015
  Transmission Date: 20250114
  Serious: Yes (Other)
  Sender: SANDOZ
  Company Number: DE-002147023-NVSC2021DE210688

PATIENT
  Sex: Male

DRUGS (2)
  1. ADALIMUMAB [Suspect]
     Active Substance: ADALIMUMAB
     Indication: Product used for unknown indication
     Dosage: UNK
     Route: 065
  2. METHOTREXATE [Suspect]
     Active Substance: METHOTREXATE
     Indication: Product used for unknown indication
     Dosage: UNK
     Route: 065

REACTIONS (9)
  - Aortic arteriosclerosis [Unknown]
  - Pancreatic steatosis [Unknown]
  - Hepatomegaly [Unknown]
  - Diverticulum intestinal [Unknown]
  - Dolichocolon [Unknown]
  - Haemorrhoids [Unknown]
  - Oedema peripheral [Not Recovered/Not Resolved]
  - Cartilage injury [Not Recovered/Not Resolved]
  - Gastrooesophageal reflux disease [Unknown]

NARRATIVE: CASE EVENT DATE: 20201101
